FAERS Safety Report 15592290 (Version 1)
Quarter: 2018Q4

REPORT INFORMATION
  Report Type: Spontaneous
  Country: CN (occurrence: CN)
  Receive Date: 20181106
  Receipt Date: 20181106
  Transmission Date: 20190205
  Serious: Yes (Other)
  Sender: FDA-Public Use
  Company Number: CN-BAYER-2018-201342

PATIENT
  Age: 68 Year
  Sex: Male
  Weight: 51 kg

DRUGS (4)
  1. AVELOX [Suspect]
     Active Substance: MOXIFLOXACIN HYDROCHLORIDE
     Indication: LUNG INFECTION
     Dosage: 250 ML, QD
     Route: 041
     Dates: start: 20180906, end: 20180910
  2. CEFMINOX SODIUM [Concomitant]
     Active Substance: CEFMINOX SODIUM
  3. TRANEXAMIC ACID. [Concomitant]
     Active Substance: TRANEXAMIC ACID
  4. SODIUM CHLORIDE. [Concomitant]
     Active Substance: SODIUM CHLORIDE

REACTIONS (2)
  - Diarrhoea [Recovering/Resolving]
  - Blood electrolytes abnormal [Recovering/Resolving]

NARRATIVE: CASE EVENT DATE: 20180907
